FAERS Safety Report 4692737-4 (Version None)
Quarter: 2005Q2

REPORT INFORMATION
  Report Type: 
  Country: None (occurrence: None)
  Receive Date: 20050617
  Receipt Date: 20041203
  Transmission Date: 20051028
  Serious: Yes (Other)
  Sender: FDA-Public Use
  Company Number: GB-GLAXOSMITHKLINE-B0361148A

PATIENT
  Sex: Male

DRUGS (3)
  1. PAROXETINE HYDROCHLORIDE [Suspect]
     Indication: CHRONIC FATIGUE SYNDROME
     Route: 065
     Dates: start: 19960101
  2. ST JOHN'S WORT [Concomitant]
  3. L-TRYPTOPHAN [Concomitant]

REACTIONS (11)
  - AMNESIA [None]
  - BURNING SENSATION [None]
  - DEPRESSION [None]
  - DRUG WITHDRAWAL SYNDROME [None]
  - ERECTILE DYSFUNCTION [None]
  - HEADACHE [None]
  - HYPERHIDROSIS [None]
  - NAUSEA [None]
  - PERIPHERAL COLDNESS [None]
  - SLEEP DISORDER [None]
  - SUICIDAL IDEATION [None]
